FAERS Safety Report 22356026 (Version 1)
Quarter: 2023Q2

REPORT INFORMATION
  Report Type: Spontaneous
  Country: CN (occurrence: CN)
  Receive Date: 20230523
  Receipt Date: 20230523
  Transmission Date: 20230722
  Serious: Yes (Other)
  Sender: FDA-Public Use
  Company Number: CN-DSJP-DSJ-2023-119711

PATIENT
  Age: 56 Year
  Sex: Male
  Weight: 85 kg

DRUGS (2)
  1. EDOXABAN [Suspect]
     Active Substance: EDOXABAN
     Indication: Peripheral swelling
     Dosage: 30 MG, QD
     Route: 048
     Dates: start: 20230327, end: 20230328
  2. EDOXABAN [Suspect]
     Active Substance: EDOXABAN
     Indication: Thrombosis

REACTIONS (2)
  - Discoloured vomit [Recovering/Resolving]
  - Gastrointestinal haemorrhage [Recovering/Resolving]

NARRATIVE: CASE EVENT DATE: 20230329
